FAERS Safety Report 6917215-0 (Version None)
Quarter: 2010Q3

REPORT INFORMATION
  Report Type: 
  Country: None (occurrence: None)
  Receive Date: 20100810
  Receipt Date: 20090116
  Transmission Date: 20110219
  Serious: Yes (Hospitalization, Other)
  Sender: FDA-Public Use
  Company Number: US-PFIZER INC-2008025908

PATIENT
  Sex: Male
  Weight: 136 kg

DRUGS (13)
  1. CELEBREX [Suspect]
     Indication: ARTHRITIS
     Dates: start: 19800101, end: 19830101
  2. CELEBREX [Suspect]
     Indication: ARTHRALGIA
  3. TRAMADOL HYDROCHLORIDE [Concomitant]
     Indication: PAIN
  4. GLIMEPIRIDE [Concomitant]
     Indication: DIABETES MELLITUS
  5. LOPID [Concomitant]
  6. ARTHROTEC [Concomitant]
  7. ACETYLSALICYLIC ACID SRT [Concomitant]
  8. ALLOPURINOL [Concomitant]
  9. TAMSULOSIN HCL [Concomitant]
  10. FUROSEMIDE [Concomitant]
  11. PROSCAR [Concomitant]
     Dosage: 2 EVERY 1 WEEKS
  12. TOPROL-XL [Concomitant]
  13. LOTREL [Concomitant]

REACTIONS (1)
  - CEREBROVASCULAR ACCIDENT [None]
